FAERS Safety Report 8572046-3 (Version None)
Quarter: 2012Q3

REPORT INFORMATION
  Report Type: 
  Country: None (occurrence: None)
  Receive Date: 20120806
  Receipt Date: 20120724
  Transmission Date: 20120928
  Serious: Yes (Other)
  Sender: FDA-Public Use
  Company Number: TR-AMGEN-TURSP2012047647

PATIENT
  Age: 42 Year
  Sex: Male

DRUGS (1)
  1. ENBREL [Suspect]
     Indication: ANKYLOSING SPONDYLITIS
     Dosage: 50 MG, WEEKLY

REACTIONS (4)
  - PLATELET COUNT INCREASED [None]
  - RECTAL HAEMORRHAGE [None]
  - BLOOD TEST ABNORMAL [None]
  - MOUTH HAEMORRHAGE [None]
